FAERS Safety Report 13931422 (Version 2)
Quarter: 2017Q4

REPORT INFORMATION
  Report Type: Report from Study
  Country: US (occurrence: US)
  Receive Date: 20170903
  Receipt Date: 20171025
  Transmission Date: 20180320
  Serious: Yes (Hospitalization, Other)
  Sender: FDA-Public Use
  Company Number: PHEH2017US027244

PATIENT
  Age: 52 Year
  Sex: Female
  Weight: 109.8 kg

DRUGS (1)
  1. COSENTYX [Suspect]
     Active Substance: SECUKINUMAB
     Indication: PSORIATIC ARTHROPATHY
     Dosage: 150 MG, QMO (EVERY 4 WEEKS)
     Route: 058
     Dates: start: 20170601

REACTIONS (4)
  - Clostridium difficile infection [Unknown]
  - Tonsillitis [Recovered/Resolved]
  - Pharyngitis [Unknown]
  - Candida infection [Unknown]

NARRATIVE: CASE EVENT DATE: 20170615
